FAERS Safety Report 7997761-1 (Version None)
Quarter: 2011Q4

REPORT INFORMATION
  Report Type: 
  Country: None (occurrence: None)
  Receive Date: 20111221
  Receipt Date: 20111214
  Transmission Date: 20120403
  Serious: Yes (Life-Threatening, Hospitalization, Other)
  Sender: FDA-Public Use
  Company Number: CH-BRISTOL-MYERS SQUIBB COMPANY-16293334

PATIENT
  Age: 16 Year
  Sex: Female
  Weight: 35 kg

DRUGS (3)
  1. VEPESID [Suspect]
     Indication: BONE SARCOMA
     Route: 041
     Dates: start: 20110815, end: 20110831
  2. ISOTRETINOIN [Suspect]
     Indication: BONE SARCOMA
     Route: 048
     Dates: start: 20110815, end: 20110828
  3. CELEBREX [Concomitant]
     Indication: BONE SARCOMA
     Route: 048
     Dates: start: 20110816, end: 20110903

REACTIONS (13)
  - HISTIOCYTOSIS HAEMATOPHAGIC [None]
  - ODYNOPHAGIA [None]
  - TOXOPLASMOSIS [None]
  - THROMBOCYTOPENIA [None]
  - MUCOSAL INFLAMMATION [None]
  - CARDIAC FAILURE [None]
  - GRANULOCYTOPENIA [None]
  - ANAEMIA [None]
  - MULTI-ORGAN FAILURE [None]
  - ACUTE RESPIRATORY DISTRESS SYNDROME [None]
  - LEUKOPENIA [None]
  - RASH MACULAR [None]
  - ALOPECIA [None]
